FAERS Safety Report 7340865-7 (Version None)
Quarter: 2011Q1

REPORT INFORMATION
  Report Type: 
  Country: None (occurrence: None)
  Receive Date: 20110309
  Receipt Date: 20110228
  Transmission Date: 20110831
  Serious: Yes (Hospitalization, Other)
  Sender: FDA-Public Use
  Company Number: US-ELI_LILLY_AND_COMPANY-US201103000467

PATIENT
  Sex: Female

DRUGS (6)
  1. LANTUS [Concomitant]
     Dosage: 22 U, UNK
     Dates: end: 20110227
  2. HUMULIN N [Suspect]
     Dosage: 32 U, EACH MORNING
  3. HUMULIN N [Suspect]
     Indication: TYPE 1 DIABETES MELLITUS
  4. ANTIHYPERTENSIVES [Concomitant]
  5. HUMALOG [Suspect]
     Indication: TYPE 1 DIABETES MELLITUS
     Dosage: UNK, AS NEEDED
  6. HUMALOG [Suspect]
     Dosage: UNK, AS NEEDED

REACTIONS (13)
  - CATARACT OPERATION [None]
  - GINGIVAL BLEEDING [None]
  - BLOOD GLUCOSE DECREASED [None]
  - LIMB INJURY [None]
  - INTRAOCULAR PRESSURE INCREASED [None]
  - BLOOD GLUCOSE INCREASED [None]
  - BLINDNESS UNILATERAL [None]
  - EYE PAIN [None]
  - GINGIVAL SWELLING [None]
  - NON-HODGKIN'S LYMPHOMA [None]
  - INJURY CORNEAL [None]
  - DIABETES MELLITUS INADEQUATE CONTROL [None]
  - CORNEAL INFECTION [None]
